FAERS Safety Report 7650055-6 (Version None)
Quarter: 2011Q3

REPORT INFORMATION
  Report Type: 
  Country: None (occurrence: None)
  Receive Date: 20110802
  Receipt Date: 20110802
  Transmission Date: 20111222
  Serious: Yes (Other)
  Sender: FDA-Public Use
  Company Number: None

PATIENT
  Age: 45 Year
  Sex: Female
  Weight: 116.11 kg

DRUGS (4)
  1. ABILIFY [Suspect]
     Indication: POST-TRAUMATIC STRESS DISORDER
     Dosage: MAXED OUT ON DOSAGE
     Route: 048
     Dates: start: 20080101, end: 20091101
  2. ABILIFY [Suspect]
     Indication: OBSESSIVE-COMPULSIVE DISORDER
     Dosage: MAXED OUT ON DOSAGE
     Route: 048
     Dates: start: 20080101, end: 20091101
  3. ABILIFY [Suspect]
     Indication: MAJOR DEPRESSION
     Dosage: MAXED OUT ON DOSAGE
     Route: 048
     Dates: start: 20080101, end: 20091101
  4. ABILIFY [Suspect]
     Indication: AGORAPHOBIA
     Dosage: MAXED OUT ON DOSAGE
     Route: 048
     Dates: start: 20080101, end: 20091101

REACTIONS (6)
  - DYSTONIA [None]
  - DYSKINESIA [None]
  - GRIMACING [None]
  - PROTRUSION TONGUE [None]
  - TARDIVE DYSKINESIA [None]
  - DYSPHONIA [None]
